FAERS Safety Report 6690725-X (Version None)
Quarter: 2010Q2

REPORT INFORMATION
  Report Type: 
  Country: None (occurrence: None)
  Receive Date: 20100420
  Receipt Date: 20100420
  Transmission Date: 20101027
  Serious: Yes (Hospitalization, Disabling)
  Sender: FDA-Public Use
  Company Number: None

PATIENT
  Age: 51 Year
  Sex: Female
  Weight: 75.9 kg

DRUGS (1)
  1. LOVAZA [Suspect]
     Indication: ARTHRALGIA
     Dosage: 4 GRAMS DAILY BY MOUTH
     Dates: start: 20100208, end: 20100308

REACTIONS (2)
  - FALL [None]
  - SPINAL CORD INJURY CERVICAL [None]
